FAERS Safety Report 5964187-1 (Version None)
Quarter: 2008Q4

REPORT INFORMATION
  Report Type: 
  Country: None (occurrence: None)
  Receive Date: 20081119
  Receipt Date: 20081008
  Transmission Date: 20090506
  Serious: No
  Sender: FDA-Public Use
  Company Number: WAES 0810USA02292

PATIENT

DRUGS (1)
  1. JANUVIA [Suspect]
     Dosage: PO
     Route: 048
     Dates: start: 20080302, end: 20080309

REACTIONS (6)
  - ARTHRALGIA [None]
  - HEADACHE [None]
  - MIGRAINE [None]
  - RASH VESICULAR [None]
  - RHINALGIA [None]
  - SINUSITIS [None]
